FAERS Safety Report 7582199-1 (Version None)
Quarter: 2011Q2

REPORT INFORMATION
  Report Type: 
  Country: None (occurrence: None)
  Receive Date: 20110630
  Receipt Date: 20110623
  Transmission Date: 20111010
  Serious: Yes (Death)
  Sender: FDA-Public Use
  Company Number: BR-SHIRE-SPV1-2010-01451

PATIENT
  Sex: Male
  Weight: 15 kg

DRUGS (1)
  1. IDURSULFASE [Suspect]
     Indication: MUCOPOLYSACCHARIDOSIS II
     Dosage: 2 DF, 1X/WEEK
     Route: 041
     Dates: start: 20080509, end: 20100729

REACTIONS (2)
  - MALNUTRITION [None]
  - RESPIRATORY FAILURE [None]
